FAERS Safety Report 15642364 (Version 1)
Quarter: 2018Q4

REPORT INFORMATION
  Report Type: Spontaneous
  Country: US (occurrence: US)
  Receive Date: 20181121
  Receipt Date: 20181121
  Transmission Date: 20190205
  Serious: No
  Sender: FDA-Public Use
  Company Number: US-ASTRAZENECA-2018SF40676

PATIENT
  Age: 54 Year
  Sex: Male
  Weight: 77.1 kg

DRUGS (3)
  1. SYMBICORT [Suspect]
     Active Substance: BUDESONIDE\FORMOTEROL FUMARATE DIHYDRATE
     Indication: CHRONIC OBSTRUCTIVE PULMONARY DISEASE
     Dosage: 160/4.5 MCG (ONE PUFF IN THE MORNING AND ONE PUFF AT NIGHT )
     Route: 055
     Dates: start: 2016
  2. PROAIR HFA [Concomitant]
     Active Substance: ALBUTEROL SULFATE
     Indication: CONDITION AGGRAVATED
     Dosage: UNKNOWN
     Route: 055
  3. SYMBICORT [Suspect]
     Active Substance: BUDESONIDE\FORMOTEROL FUMARATE DIHYDRATE
     Indication: ASTHMA
     Dosage: 160/4.5 MCG (ONE PUFF IN THE MORNING AND ONE PUFF AT NIGHT )
     Route: 055
     Dates: start: 2016

REACTIONS (8)
  - Bronchitis [Not Recovered/Not Resolved]
  - Cough [Not Recovered/Not Resolved]
  - Product use in unapproved indication [Not Recovered/Not Resolved]
  - Device occlusion [Not Recovered/Not Resolved]
  - Chronic obstructive pulmonary disease [Not Recovered/Not Resolved]
  - Off label use [Not Recovered/Not Resolved]
  - Lung disorder [Not Recovered/Not Resolved]
  - Intentional device misuse [Not Recovered/Not Resolved]

NARRATIVE: CASE EVENT DATE: 2018
